FAERS Safety Report 6192690-0 (Version None)
Quarter: 2009Q2

REPORT INFORMATION
  Report Type: 
  Country: None (occurrence: None)
  Receive Date: 20090518
  Receipt Date: 20090512
  Transmission Date: 20091009
  Serious: Yes (Hospitalization)
  Sender: FDA-Public Use
  Company Number: GB-ROCHE-633035

PATIENT
  Age: 33 Year
  Sex: Female

DRUGS (1)
  1. CEFTRIAXONE [Suspect]
     Indication: LYME DISEASE
     Route: 042
     Dates: start: 20090126, end: 20090213

REACTIONS (2)
  - AGRANULOCYTOSIS [None]
  - NEURODERMATITIS [None]
